FAERS Safety Report 7371645-4 (Version None)
Quarter: 2011Q1

REPORT INFORMATION
  Report Type: 
  Country: None (occurrence: None)
  Receive Date: 20110324
  Receipt Date: 20110318
  Transmission Date: 20110831
  Serious: Yes (Hospitalization)
  Sender: FDA-Public Use
  Company Number: FR-PFIZER INC-2011059645

PATIENT
  Age: 71 Year
  Sex: Female

DRUGS (11)
  1. ERYTHROMYCIN [Suspect]
     Indication: PNEUMOCYSTIS JIROVECI INFECTION
     Dosage: 1 G, 3X/DAY
     Route: 048
     Dates: start: 20110129, end: 20110212
  2. ACICLOVIR [Concomitant]
     Dosage: UNK
     Route: 048
     Dates: start: 20110125, end: 20110127
  3. BACTRIM [Suspect]
     Indication: MYCOPLASMA INFECTION
  4. DALACINE [Suspect]
     Indication: PNEUMOCYSTIS JIROVECI INFECTION
  5. ERYTHROMYCIN [Suspect]
     Indication: MYCOPLASMA INFECTION
  6. ROCEPHIN [Suspect]
     Dosage: UNK
     Route: 048
     Dates: start: 20110125, end: 20110208
  7. TAMIFLU [Concomitant]
     Dosage: UNK
     Route: 048
     Dates: start: 20110129, end: 20110201
  8. ZYVOX [Suspect]
     Indication: MYCOPLASMA INFECTION
     Dosage: 600 MG, 2X/DAY
     Route: 048
     Dates: start: 20110203, end: 20110210
  9. ZYVOX [Suspect]
     Indication: PNEUMOCYSTIS JIROVECI INFECTION
  10. DALACINE [Suspect]
     Indication: MYCOPLASMA INFECTION
     Dosage: 600 MG, 3X/DAY
     Route: 048
     Dates: start: 20110201, end: 20110211
  11. BACTRIM [Suspect]
     Indication: PNEUMOCYSTIS JIROVECI INFECTION
     Dosage: 4 DF, 3X/DAY
     Route: 042
     Dates: start: 20110129, end: 20110214

REACTIONS (2)
  - THROMBOCYTOPENIA [None]
  - POLYURIA [None]
